FAERS Safety Report 20981098 (Version 5)
Quarter: 2022Q4

REPORT INFORMATION
  Report Type: Spontaneous
  Country: DE (occurrence: DE)
  Receive Date: 20220620
  Receipt Date: 20221007
  Transmission Date: 20230113
  Serious: Yes (Death, Other)
  Sender: FDA-Public Use
  Company Number: DE-PFM-2022-05099

PATIENT
  Age: 63 Year
  Sex: Male

DRUGS (15)
  1. BRAFTOVI [Suspect]
     Active Substance: ENCORAFENIB
     Indication: Colon cancer
     Dosage: 75 MG, QID (4/DAY)
     Route: 048
     Dates: start: 20210719
  2. BRAFTOVI [Suspect]
     Active Substance: ENCORAFENIB
     Dosage: 75 MG, BID (2/DAY)
     Route: 048
  3. BRAFTOVI [Suspect]
     Active Substance: ENCORAFENIB
     Dosage: UNK
     Route: 048
     Dates: start: 20210802, end: 20210811
  4. CETUXIMAB [Concomitant]
     Active Substance: CETUXIMAB
     Indication: Colon cancer
     Dosage: UNK
     Route: 065
     Dates: start: 202108, end: 202110
  5. PANTOPRAZOLE SODIUM [Concomitant]
     Active Substance: PANTOPRAZOLE SODIUM
     Dosage: 20 MG, BID (2/DAY)
     Route: 065
  6. NALOXEGOL [Concomitant]
     Active Substance: NALOXEGOL
     Dosage: 25 MG, QD (1/DAY)
     Route: 065
  7. ASPIRIN [Concomitant]
     Active Substance: ASPIRIN
     Dosage: 100 MG, QD (1/DAY)
     Route: 048
  8. CHLORTHALIDONE [Concomitant]
     Active Substance: CHLORTHALIDONE
     Dosage: 25 MG, QD (1/DAY)
     Route: 065
  9. LERCANIDIPINE HYDROCHLORIDE [Concomitant]
     Active Substance: LERCANIDIPINE HYDROCHLORIDE
     Dosage: 10 MG, BID (2/DAY)
     Route: 065
  10. VALSARTAN [Concomitant]
     Active Substance: VALSARTAN
     Dosage: 160 MG, BID (2/DAY)
     Route: 065
  11. ATORVASTATIN [Concomitant]
     Active Substance: ATORVASTATIN
     Dosage: 20 MG, QD (1/DAY)
     Route: 065
  12. FENTANYL [Concomitant]
     Active Substance: FENTANYL
     Dosage: 1 DF,UNK (FORMULATION:PLASTER)
     Route: 062
  13. PREGABALIN [Concomitant]
     Active Substance: PREGABALIN
     Dosage: 50 MG, BID (2/DAY)
     Route: 065
  14. Melperonem hydrochloride [Concomitant]
     Dosage: 50 MG, BID (2/DAY)
     Route: 065
  15. MORPHINE SULFATE [Concomitant]
     Active Substance: MORPHINE SULFATE
     Indication: Pain
     Dosage: 1 DF, PRN (AS NEEDED)
     Route: 048

REACTIONS (13)
  - Neoplasm progression [Fatal]
  - General physical health deterioration [Unknown]
  - Gait disturbance [Unknown]
  - Onycholysis [Unknown]
  - Onychomadesis [Unknown]
  - Skin disorder [Unknown]
  - Renal disorder [Unknown]
  - Erythema [Recovering/Resolving]
  - Headache [Recovering/Resolving]
  - Erythema [Recovering/Resolving]
  - Peripheral swelling [Recovering/Resolving]
  - Joint swelling [Not Recovered/Not Resolved]
  - Oral pain [Recovering/Resolving]

NARRATIVE: CASE EVENT DATE: 20210727
